FAERS Safety Report 17070872 (Version 3)
Quarter: 2020Q1

REPORT INFORMATION
  Report Type: Spontaneous
  Country: US (occurrence: US)
  Receive Date: 20191125
  Receipt Date: 20200319
  Transmission Date: 20200409
  Serious: Yes (Death, Hospitalization, Other)
  Sender: FDA-Public Use
  Company Number: US-LEXICON PHARMACEUTICALS, INC-19-1606-01046

PATIENT
  Age: 71 Year
  Sex: Male

DRUGS (9)
  1. XERMELO [Suspect]
     Active Substance: TELOTRISTAT ETHYL
     Indication: CARCINOID SYNDROME
     Route: 048
     Dates: start: 20191112, end: 20191231
  2. OCTREOTIDE. [Concomitant]
     Active Substance: OCTREOTIDE
  3. XERMELO [Suspect]
     Active Substance: TELOTRISTAT ETHYL
     Indication: LARYNGEAL NEOPLASM
     Route: 048
     Dates: start: 20191022, end: 20191107
  4. SSA UNSPECIFIED [Concomitant]
  5. DIGOXIN. [Concomitant]
     Active Substance: DIGOXIN
  6. KEPPRA [Concomitant]
     Active Substance: LEVETIRACETAM
  7. MEPRAZOLE [Concomitant]
  8. DEXAMETHASONE. [Concomitant]
     Active Substance: DEXAMETHASONE
  9. SIMVASTATIN. [Concomitant]
     Active Substance: SIMVASTATIN

REACTIONS (5)
  - Malignant neoplasm progression [Fatal]
  - Disorientation [Recovering/Resolving]
  - Mental status changes [Unknown]
  - Brain cancer metastatic [Not Recovered/Not Resolved]
  - Hospice care [Not Recovered/Not Resolved]

NARRATIVE: CASE EVENT DATE: 20191107
